FAERS Safety Report 4832537-5 (Version None)
Quarter: 2005Q4

REPORT INFORMATION
  Report Type: 
  Country: None (occurrence: None)
  Receive Date: 20051117
  Receipt Date: 20051104
  Transmission Date: 20060501
  Serious: Yes (Hospitalization)
  Sender: FDA-Public Use
  Company Number: 2005PV003265

PATIENT
  Age: 53 Year
  Sex: Female

DRUGS (19)
  1. BYETTA [Suspect]
     Indication: DIABETES MELLITUS NON-INSULIN-DEPENDENT
     Dosage: 10 MCG BID SC; 5 MCG BID SC
     Route: 058
     Dates: start: 20050618, end: 20050729
  2. BYETTA [Suspect]
     Indication: DIABETES MELLITUS NON-INSULIN-DEPENDENT
     Dosage: 10 MCG BID SC; 5 MCG BID SC
     Route: 058
     Dates: start: 20050730, end: 20050901
  3. BYETTA [Suspect]
     Indication: DIABETES MELLITUS NON-INSULIN-DEPENDENT
     Dosage: 10 MCG BID SC; 5 MCG BID SC
     Route: 058
     Dates: start: 20050922
  4. AMARYL [Concomitant]
  5. GLUCOPHAGE [Concomitant]
  6. WELLBUTRIN [Concomitant]
  7. PROZAC [Concomitant]
  8. SYNTHROID [Concomitant]
  9. IRON [Concomitant]
  10. MAXALT [Concomitant]
  11. AMBIEN [Concomitant]
  12. VALIUM [Concomitant]
  13. VYTORIN [Concomitant]
  14. COREG [Concomitant]
  15. NIFEDIPINE [Concomitant]
  16. OMEPRAZOLE [Concomitant]
  17. HUMALOG [Concomitant]
  18. LANTUS [Concomitant]
  19. LISPRO [Concomitant]

REACTIONS (27)
  - ABNORMAL BEHAVIOUR [None]
  - ANXIETY [None]
  - BIPOLAR I DISORDER [None]
  - DEJA VU [None]
  - DELIRIUM [None]
  - DIABETES MELLITUS INADEQUATE CONTROL [None]
  - DIABETIC NEUROPATHY [None]
  - ECHOLALIA [None]
  - FALL [None]
  - FATIGUE [None]
  - GRANDIOSITY [None]
  - HYPOMANIA [None]
  - INTENTIONAL SELF-INJURY [None]
  - LOOSE ASSOCIATIONS [None]
  - MANIA [None]
  - MEMORY IMPAIRMENT [None]
  - MENTAL STATUS CHANGES [None]
  - NERVOUS SYSTEM DISORDER [None]
  - PARANOIA [None]
  - PSYCHOMOTOR HYPERACTIVITY [None]
  - PSYCHOTIC DISORDER [None]
  - REPETITIVE SPEECH [None]
  - SLEEP DISORDER [None]
  - SPEECH DISORDER [None]
  - URINARY TRACT INFECTION [None]
  - VERBIGERATION [None]
  - WEIGHT DECREASED [None]
